FAERS Safety Report 7557650-3 (Version None)
Quarter: 2011Q2

REPORT INFORMATION
  Report Type: 
  Country: None (occurrence: None)
  Receive Date: 20110610
  Receipt Date: 20110606
  Transmission Date: 20111010
  Serious: Yes (Hospitalization)
  Sender: FDA-Public Use
  Company Number: DKLU1071105

PATIENT
  Age: 8 Year
  Sex: Male

DRUGS (1)
  1. SABRIL [Suspect]
     Indication: INFANTILE SPASMS
     Dosage: 10 ML MILLILITRE(S), 2 IN 1 D, ORAL
     Route: 048

REACTIONS (7)
  - PNEUMONIA [None]
  - CYSTITIS [None]
  - ARTHRITIS INFECTIVE [None]
  - EYE INFECTION STAPHYLOCOCCAL [None]
  - COLLAPSE OF LUNG [None]
  - JOINT INJURY [None]
  - IMPAIRED HEALING [None]
